FAERS Safety Report 5201927-3 (Version None)
Quarter: 2007Q1

REPORT INFORMATION
  Report Type: 
  Country: None (occurrence: None)
  Receive Date: 20070104
  Receipt Date: 20061220
  Transmission Date: 20070707
  Serious: Yes (Hospitalization)
  Sender: FDA-Public Use
  Company Number: 151181ISR

PATIENT
  Sex: Female

DRUGS (1)
  1. CISPLATIN [Suspect]

REACTIONS (2)
  - ANGINA PECTORIS [None]
  - ELECTROCARDIOGRAM ST SEGMENT ELEVATION [None]
